FAERS Safety Report 23327246 (Version 1)
Quarter: 2023Q4

REPORT INFORMATION
  Report Type: Spontaneous
  Country: GB (occurrence: GB)
  Receive Date: 20231221
  Receipt Date: 20231221
  Transmission Date: 20240109
  Serious: Yes (Other)
  Sender: FDA-Public Use
  Company Number: None

PATIENT
  Age: 54 Year
  Sex: Female

DRUGS (2)
  1. CLARITHROMYCIN [Suspect]
     Active Substance: CLARITHROMYCIN
     Indication: Ear infection
     Dosage: 500 MG, BID
     Route: 065
     Dates: start: 20231210, end: 20231214
  2. SERTRALINE [Concomitant]
     Active Substance: SERTRALINE HYDROCHLORIDE
     Indication: Depression
     Route: 065

REACTIONS (4)
  - Swollen tongue [Recovering/Resolving]
  - Swelling face [Recovering/Resolving]
  - Throat tightness [Recovering/Resolving]
  - Swelling [Recovering/Resolving]
